FAERS Safety Report 7544822-7 (Version None)
Quarter: 2011Q2

REPORT INFORMATION
  Report Type: 
  Country: None (occurrence: None)
  Receive Date: 20110614
  Receipt Date: 20110601
  Transmission Date: 20111010
  Serious: Yes (Other)
  Sender: FDA-Public Use
  Company Number: US-BAYER-2011-047896

PATIENT
  Age: 40 Year
  Sex: Female

DRUGS (2)
  1. MIRENA [Suspect]
     Indication: CONTRACEPTION
     Dosage: 20 MCG/24HR, CONT
     Dates: start: 20110426, end: 20110503
  2. MIRENA [Suspect]
     Dosage: 20 MCG/24HR, CONT
     Dates: start: 20110517, end: 20110526

REACTIONS (2)
  - VAGINAL HAEMORRHAGE [None]
  - DEVICE EXPULSION [None]
